FAERS Safety Report 9222796 (Version 2)
Quarter: 2013Q2

REPORT INFORMATION
  Report Type: Report from Study
  Country: RO (occurrence: RO)
  Receive Date: 20130410
  Receipt Date: 20130411
  Transmission Date: 20140414
  Serious: Yes (Hospitalization)
  Sender: FDA-Public Use
  Company Number: RO-SANOFI-AVENTIS-2013SA036046

PATIENT
  Age: 79 Year
  Sex: Male
  Weight: 80 kg

DRUGS (9)
  1. CABAZITAXEL [Suspect]
     Indication: PROSTATE CANCER
     Route: 042
  2. CABAZITAXEL [Suspect]
     Indication: PROSTATE CANCER
     Route: 042
     Dates: start: 20130313, end: 20130313
  3. PREDNISONE [Suspect]
     Indication: PROSTATE CANCER
     Route: 048
     Dates: end: 20130401
  4. KETONAL [Concomitant]
     Route: 048
     Dates: start: 20120503
  5. TRAMADOL [Concomitant]
     Route: 048
     Dates: start: 20120811
  6. QUINAX [Concomitant]
     Indication: PROPHYLAXIS
     Route: 047
     Dates: start: 20121101
  7. MONOPRIL [Concomitant]
     Route: 048
  8. INDAPAMIDE [Concomitant]
     Route: 048
  9. HUMALOG [Concomitant]
     Route: 048

REACTIONS (1)
  - Rectal haemorrhage [Recovering/Resolving]
